FAERS Safety Report 6982102-9 (Version None)
Quarter: 2010Q3

REPORT INFORMATION
  Report Type: 
  Country: None (occurrence: None)
  Receive Date: 20100914
  Receipt Date: 20091207
  Transmission Date: 20110219
  Serious: Yes (Other)
  Sender: FDA-Public Use
  Company Number: US-PFIZER INC-2009307285

PATIENT
  Sex: Male
  Weight: 68.027 kg

DRUGS (5)
  1. LYRICA [Suspect]
     Dosage: 25 MG, 1X/DAY
     Route: 048
     Dates: start: 20090901
  2. AMLODIPINE BESILATE [Concomitant]
     Indication: HYPERTENSION
     Dosage: 10 MG, 1X/DAY
  3. PROSCAR [Concomitant]
     Indication: PROSTATOMEGALY
     Dosage: 5 MG, 1X/DAY
  4. SALSALATE [Concomitant]
     Indication: PAIN
     Dosage: FREQUENCY: AS NEEDED,
     Dates: start: 20060101
  5. CARISOPRODOL [Concomitant]
     Indication: MUSCLE RELAXANT THERAPY
     Dosage: FREQUENCY: AS NEEDED,
     Dates: start: 20060101

REACTIONS (1)
  - VISUAL ACUITY REDUCED [None]
